FAERS Safety Report 20579088 (Version 1)
Quarter: 2022Q1

REPORT INFORMATION
  Report Type: Spontaneous
  Country: US (occurrence: None)
  Receive Date: 20220310
  Receipt Date: 20220310
  Transmission Date: 20220423
  Serious: No
  Sender: FDA-Public Use
  Company Number: None

PATIENT
  Age: 77 Year
  Sex: Male
  Weight: 252 kg

DRUGS (1)
  1. CEFEPIME HYDROCHLORIDE [Suspect]
     Active Substance: CEFEPIME HYDROCHLORIDE
     Dosage: FREQUENCY : 3 TIMES A DAY;?
     Route: 042
     Dates: start: 20201021, end: 20201021

REACTIONS (15)
  - Agitation [None]
  - Abdominal pain lower [None]
  - Confusional state [None]
  - Urine leukocyte esterase positive [None]
  - Nitrite urine present [None]
  - Tremor [None]
  - Myoclonus [None]
  - Eye disorder [None]
  - Bruxism [None]
  - Postictal state [None]
  - Seizure [None]
  - Blood lactic acid increased [None]
  - Urticaria [None]
  - Hypersensitivity [None]
  - Pruritus [None]

NARRATIVE: CASE EVENT DATE: 20201022
